FAERS Safety Report 17892304 (Version 4)
Quarter: 2020Q3

REPORT INFORMATION
  Report Type: Spontaneous
  Country: US (occurrence: US)
  Receive Date: 20200612
  Receipt Date: 20200817
  Transmission Date: 20201103
  Serious: Yes (Other)
  Sender: FDA-Public Use
  Company Number: US-GILEAD-2020-0469828

PATIENT
  Age: 32 Year
  Sex: Male
  Weight: 112 kg

DRUGS (15)
  1. AZITHROMYCIN ANHYDROUS. [Concomitant]
     Active Substance: AZITHROMYCIN ANHYDROUS
  2. ROBITUSSIN (GUAIFENESIN) [Concomitant]
     Active Substance: GUAIFENESIN
  3. MIDAZOLAM. [Concomitant]
     Active Substance: MIDAZOLAM
  4. NOREPINEPHRINE. [Concomitant]
     Active Substance: NOREPINEPHRINE
  5. ONDANSETRON [Concomitant]
     Active Substance: ONDANSETRON
  6. NORMAL SALINE [Concomitant]
     Active Substance: SODIUM CHLORIDE
  7. DEXMEDETOMIDINE. [Concomitant]
     Active Substance: DEXMEDETOMIDINE
  8. INSULIN ASPART [Concomitant]
     Active Substance: INSULIN ASPART
  9. CEFTRIAXONE. [Concomitant]
     Active Substance: CEFTRIAXONE
  10. HEPARIN [Concomitant]
     Active Substance: HEPARIN SODIUM
  11. FENTANYL. [Concomitant]
     Active Substance: FENTANYL
  12. TOPROL XL [Concomitant]
     Active Substance: METOPROLOL SUCCINATE
  13. REMDESIVIR. [Suspect]
     Active Substance: REMDESIVIR
     Indication: COVID-19
     Dosage: UNK
     Route: 065
     Dates: start: 20200530
  14. ENOXAPARIN [Concomitant]
     Active Substance: ENOXAPARIN
  15. PROPOFOL. [Concomitant]
     Active Substance: PROPOFOL

REACTIONS (2)
  - Glomerular filtration rate decreased [Not Recovered/Not Resolved]
  - Renal impairment [Unknown]

NARRATIVE: CASE EVENT DATE: 20200531
